FAERS Safety Report 9003626 (Version 1)
Quarter: 2013Q1

REPORT INFORMATION
  Report Type: Spontaneous
  Country: FR (occurrence: FR)
  Receive Date: 20130108
  Receipt Date: 20130108
  Transmission Date: 20140127
  Serious: Yes (Hospitalization)
  Sender: FDA-Public Use
  Company Number: FR-PFIZER INC-2013001890

PATIENT
  Age: 81 Year
  Sex: Female

DRUGS (6)
  1. AMLOR [Suspect]
     Dosage: 5 MG, 1X/DAY
     Route: 048
     Dates: start: 201208
  2. TAREG [Suspect]
     Dosage: 80 MG, 1X/DAY
     Route: 048
     Dates: start: 201208
  3. ALDACTONE [Concomitant]
     Dosage: 25 MG, UNK
     Route: 048
     Dates: start: 2009
  4. EUPRESSYL [Concomitant]
     Dosage: 60 MG/DAY
     Route: 048
     Dates: start: 2009
  5. PREVISCAN [Concomitant]
     Dosage: 20 MG, UNK
     Route: 048
     Dates: start: 2009
  6. LEVOTHYROX [Concomitant]
     Dosage: 125 UG, 1X/DAY
     Dates: start: 2009

REACTIONS (4)
  - Dermatitis exfoliative [Recovered/Resolved]
  - Pruritus [Recovered/Resolved]
  - Eosinophil count increased [Recovered/Resolved]
  - Renal failure [Recovered/Resolved]
